FAERS Safety Report 5451366-5 (Version None)
Quarter: 2007Q3

REPORT INFORMATION
  Report Type: 
  Country: None (occurrence: None)
  Receive Date: 20070911
  Receipt Date: 20070911
  Transmission Date: 20080115
  Serious: Yes (Hospitalization, Disabling)
  Sender: FDA-Public Use
  Company Number: None

PATIENT
  Age: 46 Year
  Sex: Female
  Weight: 64 kg

DRUGS (12)
  1. METOCLOPRAMIDE [Suspect]
     Dosage: 10MG EVERY 6 HOURS PO
     Route: 048
  2. CALCIUM/D [Concomitant]
  3. OMEPRAZOLE [Concomitant]
  4. FLUOXETINE [Concomitant]
  5. GEMFIBROZIL [Concomitant]
  6. LITHIUM [Concomitant]
  7. LEVOTHYROXINE SODIUM [Concomitant]
  8. TEMAZEPAM [Concomitant]
  9. HYDRALAZINE HCL [Concomitant]
  10. TRAZODONE HCL [Concomitant]
  11. LEVOFLOXACIN [Concomitant]
  12. ATENOLOL [Concomitant]

REACTIONS (5)
  - DYSPHAGIA [None]
  - HYPOKINESIA [None]
  - NEUROLEPTIC MALIGNANT SYNDROME [None]
  - SPEECH DISORDER [None]
  - TREMOR [None]
